FAERS Safety Report 9358435 (Version 2)
Quarter: 2013Q3

REPORT INFORMATION
  Report Type: Spontaneous
  Country: US (occurrence: US)
  Receive Date: 20130620
  Receipt Date: 20130815
  Transmission Date: 20140515
  Serious: Yes (Other)
  Sender: FDA-Public Use
  Company Number: US-FRI-1000045982

PATIENT
  Age: 58 Year
  Sex: Male
  Weight: 111 kg

DRUGS (6)
  1. TEFLARO [Suspect]
     Indication: SPINAL CORD INFECTION
     Dosage: 600 MG EVERY 12 HOURS
     Route: 042
     Dates: start: 20130424, end: 20130517
  2. OXYCODONE [Concomitant]
     Dosage: 15 MG EVERY 6 HOURS
     Route: 048
  3. OXYCONTIN [Concomitant]
     Dosage: 30 MG EVERY 12 HOURS
     Route: 048
  4. OMEPRAZOLE [Concomitant]
     Dosage: 20 MG
     Route: 048
  5. GABAPENTIN [Concomitant]
     Dosage: 300 MG
     Route: 048
  6. METFORMIN [Concomitant]
     Dosage: 1000 MG
     Route: 048

REACTIONS (2)
  - Pancytopenia [Recovered/Resolved]
  - Off label use [Recovered/Resolved]
